FAERS Safety Report 9226287 (Version 1)
Quarter: 2013Q2

REPORT INFORMATION
  Report Type: Spontaneous
  Country: US (occurrence: US)
  Receive Date: 20130411
  Receipt Date: 20130411
  Transmission Date: 20140414
  Serious: Yes (Other)
  Sender: FDA-Public Use
  Company Number: US-009507513-1304USA004008

PATIENT
  Sex: Male

DRUGS (5)
  1. DEXAMETHASONE [Suspect]
  2. REVLIMID [Suspect]
     Indication: PLASMA CELL MYELOMA
     Dosage: 25 MG, 21 IN 28 D
     Route: 048
     Dates: start: 20120821
  3. REVLIMID [Suspect]
     Dosage: 15 MG, 21 IN 28 D
     Route: 048
     Dates: start: 201303
  4. VELCADE [Suspect]
     Indication: PLASMA CELL MYELOMA
  5. ASPIRIN [Concomitant]
     Indication: PRODUCT USED FOR UNKNOWN INDICATION

REACTIONS (3)
  - Pain in extremity [Recovered/Resolved]
  - Gout [Recovered/Resolved]
  - Fatigue [Unknown]
